FAERS Safety Report 9935386 (Version 2)
Quarter: 2014Q1

REPORT INFORMATION
  Report Type: Spontaneous
  Country: US (occurrence: US)
  Receive Date: 20140228
  Receipt Date: 20140228
  Transmission Date: 20141002
  Serious: No
  Sender: FDA-Public Use
  Company Number: US-PFIZER INC-2013296545

PATIENT
  Age: 45 Year
  Sex: Male

DRUGS (1)
  1. SUTENT [Suspect]
     Indication: LEIOMYOSARCOMA
     Dosage: 37.5 MG, DAILY ( 12.5MG AND 25MG DAILY)
     Dates: start: 20131018

REACTIONS (3)
  - Disease progression [Unknown]
  - Leiomyosarcoma [Unknown]
  - Off label use [Unknown]
